FAERS Safety Report 6728503-5 (Version None)
Quarter: 2010Q2

REPORT INFORMATION
  Report Type: 
  Country: None (occurrence: None)
  Receive Date: 20100517
  Receipt Date: 20100508
  Transmission Date: 20101027
  Serious: Yes (Other)
  Sender: FDA-Public Use
  Company Number: US-PFIZER INC-2010058764

PATIENT
  Sex: Female
  Weight: 64 kg

DRUGS (2)
  1. CHANTIX [Suspect]
     Indication: SMOKING CESSATION THERAPY
     Dosage: 0.5 MG, 1X/DAY
     Route: 048
     Dates: start: 20100401, end: 20100501
  2. AMISULPRIDE [Concomitant]
     Indication: DEPRESSION
     Dosage: UNK

REACTIONS (4)
  - BLISTER [None]
  - BURNING SENSATION [None]
  - ERYTHEMA [None]
  - URTICARIA [None]
